FAERS Safety Report 4333224-2 (Version None)
Quarter: 2004Q2

REPORT INFORMATION
  Report Type: 
  Country: None (occurrence: None)
  Receive Date: 20040405
  Receipt Date: 20040405
  Transmission Date: 20050107
  Serious: Yes (Other)
  Sender: FDA-Public Use
  Company Number: None

PATIENT
  Age: 47 Year
  Sex: Male
  Weight: 83.9154 kg

DRUGS (2)
  1. ZOLOFT [Suspect]
     Indication: ANXIETY
     Dates: start: 20010101, end: 20040401
  2. ZOLOFT [Suspect]
     Indication: SOCIAL PROBLEM
     Dates: start: 20010101, end: 20040401

REACTIONS (6)
  - ANXIETY [None]
  - DISTURBANCE IN ATTENTION [None]
  - DIZZINESS [None]
  - INSOMNIA [None]
  - NERVOUSNESS [None]
  - PARAESTHESIA [None]
